FAERS Safety Report 6379306-5 (Version None)
Quarter: 2009Q3

REPORT INFORMATION
  Report Type: 
  Country: None (occurrence: None)
  Receive Date: 20090928
  Receipt Date: 20090922
  Transmission Date: 20100115
  Serious: No
  Sender: FDA-Public Use
  Company Number: IT-AMGEN-UK365880

PATIENT
  Sex: Female

DRUGS (1)
  1. VECTIBIX [Suspect]
     Indication: COLORECTAL CANCER
     Route: 042
     Dates: start: 20090422, end: 20090518

REACTIONS (4)
  - DERMATITIS [None]
  - FOLLICULITIS [None]
  - PRURITUS [None]
  - XERODERMA [None]
